FAERS Safety Report 12703404 (Version 1)
Quarter: 2016Q3

REPORT INFORMATION
  Report Type: Spontaneous
  Country: US (occurrence: US)
  Receive Date: 20160831
  Receipt Date: 20160831
  Transmission Date: 20161109
  Serious: Yes (Other)
  Sender: FDA-Public Use
  Company Number: US-BAYER-2016-168119

PATIENT
  Age: 26 Year
  Sex: Female

DRUGS (1)
  1. MIRENA [Suspect]
     Active Substance: LEVONORGESTREL
     Indication: CONTRACEPTION
     Dosage: 20 MCG/24HR, CONT
     Route: 015
     Dates: start: 2008

REACTIONS (6)
  - Drug ineffective [None]
  - Back pain [None]
  - Pain in extremity [None]
  - Pregnancy with contraceptive device [None]
  - Device dislocation [None]
  - Caesarean section [None]

NARRATIVE: CASE EVENT DATE: 2010
